FAERS Safety Report 7996138-2 (Version None)
Quarter: 2011Q4

REPORT INFORMATION
  Report Type: 
  Country: None (occurrence: None)
  Receive Date: 20111220
  Receipt Date: 20111214
  Transmission Date: 20120403
  Serious: Yes (Hospitalization)
  Sender: FDA-Public Use
  Company Number: PHHY2011JP105198

PATIENT
  Sex: Female

DRUGS (3)
  1. LOPRESSOR [Suspect]
     Dosage: 20 MG, TID
     Dates: end: 20111107
  2. LIPITOR [Suspect]
     Dosage: 10 MG, QD
     Route: 048
     Dates: end: 20111107
  3. PLAVIX [Suspect]
     Dosage: 75 MG, UNK
     Route: 048
     Dates: end: 20111107

REACTIONS (1)
  - EOSINOPHIL COUNT INCREASED [None]
